FAERS Safety Report 6998639-2 (Version None)
Quarter: 2010Q3

REPORT INFORMATION
  Report Type: 
  Country: None (occurrence: None)
  Receive Date: 20100920
  Receipt Date: 20100104
  Transmission Date: 20110219
  Serious: No
  Sender: FDA-Public Use
  Company Number: US-ASTRAZENECA-2010SE00160

PATIENT
  Age: 46 Year
  Sex: Male
  Weight: 98.9 kg

DRUGS (2)
  1. SEROQUEL [Suspect]
     Indication: BIPOLAR DISORDER
     Route: 048
     Dates: start: 20050101, end: 20091218
  2. SEROQUEL [Suspect]
     Route: 048
     Dates: start: 20091218

REACTIONS (2)
  - ANXIETY [None]
  - INSOMNIA [None]
